FAERS Safety Report 18742900 (Version 1)
Quarter: 2021Q1

REPORT INFORMATION
  Report Type: Spontaneous
  Country: CA (occurrence: CA)
  Receive Date: 20210115
  Receipt Date: 20210115
  Transmission Date: 20210419
  Serious: Yes (Hospitalization, Other)
  Sender: FDA-Public Use
  Company Number: CA-AUROBINDO-AUR-APL-2021-001109

PATIENT
  Age: 70 Year
  Sex: Female

DRUGS (11)
  1. FYCOMPA [Suspect]
     Active Substance: PERAMPANEL
     Indication: FOCAL DYSCOGNITIVE SEIZURES
     Dosage: 10 MILLIGRAM, ONCE A DAY
     Route: 048
  2. FYCOMPA [Suspect]
     Active Substance: PERAMPANEL
     Indication: EPILEPSY
     Dosage: 8 MILLIGRAM, ONCE A DAY
     Route: 048
  3. FYCOMPA [Suspect]
     Active Substance: PERAMPANEL
     Indication: FOCAL DYSCOGNITIVE SEIZURES
     Dosage: 2 MILLIGRAM, ONCE A DAY
     Route: 048
  4. CLOBAZAM. [Concomitant]
     Active Substance: CLOBAZAM
     Indication: PRODUCT USED FOR UNKNOWN INDICATION
     Dosage: UNK
     Route: 065
  5. FYCOMPA [Suspect]
     Active Substance: PERAMPANEL
     Dosage: 15 MILLIGRAM, ONCE A DAY
     Route: 048
  6. RAMIPRIL. [Concomitant]
     Active Substance: RAMIPRIL
     Indication: PRODUCT USED FOR UNKNOWN INDICATION
     Dosage: UNK
     Route: 065
  7. FYCOMPA [Suspect]
     Active Substance: PERAMPANEL
     Dosage: 12 MILLIGRAM, ONCE A DAY
     Route: 048
  8. LAMOTRIGINE TABLET [Suspect]
     Active Substance: LAMOTRIGINE
     Indication: PRODUCT USED FOR UNKNOWN INDICATION
     Dosage: UNK
     Route: 048
  9. FYCOMPA [Suspect]
     Active Substance: PERAMPANEL
     Dosage: 6 MILLIGRAM, ONCE A DAY
     Route: 048
  10. FYCOMPA [Suspect]
     Active Substance: PERAMPANEL
     Dosage: 4 MILLIGRAM, ONCE A DAY
     Route: 048
  11. FYCOMPA [Suspect]
     Active Substance: PERAMPANEL
     Indication: EPILEPSY

REACTIONS (11)
  - Platelet count decreased [Recovered/Resolved]
  - Cerebrovascular accident [Recovered/Resolved]
  - Influenza [Recovered/Resolved]
  - Intentional product use issue [Recovered/Resolved]
  - Fatigue [Recovered/Resolved]
  - Epilepsy [Recovered/Resolved]
  - Urinary incontinence [Recovered/Resolved]
  - Blood pressure fluctuation [Recovered/Resolved]
  - Chronic kidney disease [Recovered/Resolved]
  - Confusional state [Recovered/Resolved]
  - Hypertension [Recovered/Resolved]
